FAERS Safety Report 18086343 (Version 1)
Quarter: 2020Q3

REPORT INFORMATION
  Report Type: Spontaneous
  Country: US (occurrence: US)
  Receive Date: 20200728
  Receipt Date: 20200728
  Transmission Date: 20201103
  Serious: Yes (Hospitalization)
  Sender: FDA-Public Use
  Company Number: None

PATIENT
  Age: 93 Year
  Sex: Female

DRUGS (1)
  1. CINACALCET HCL, 30 MG/KG [Suspect]
     Active Substance: CINACALCET HYDROCHLORIDE
     Indication: CHRONIC KIDNEY DISEASE
     Route: 048
     Dates: start: 20191002

REACTIONS (3)
  - Dizziness [None]
  - Nausea [None]
  - Myalgia [None]

NARRATIVE: CASE EVENT DATE: 20200428
